FAERS Safety Report 17533092 (Version 1)
Quarter: 2020Q1

REPORT INFORMATION
  Report Type: Spontaneous
  Country: UM (occurrence: UM)
  Receive Date: 20200304
  Receipt Date: 20200304
  Transmission Date: 20200409
  Serious: No
  Sender: FDA-Public Use
  Company Number: None

PATIENT
  Sex: Male
  Weight: 34.02 kg

DRUGS (1)
  1. HIZENTRA [Suspect]
     Active Substance: HUMAN IMMUNOGLOBULIN G
     Indication: HALLUCINATION, AUDITORY
     Route: 048
     Dates: start: 20180820

REACTIONS (3)
  - Diarrhoea [None]
  - Sinusitis [None]
  - Vomiting [None]
